FAERS Safety Report 12675696 (Version 1)
Quarter: 2016Q3

REPORT INFORMATION
  Report Type: Spontaneous
  Country: US (occurrence: None)
  Receive Date: 20160822
  Receipt Date: 20160822
  Transmission Date: 20161109
  Serious: Yes (Life-Threatening, Hospitalization)
  Sender: FDA-Public Use
  Company Number: None

PATIENT
  Age: 38 Year
  Sex: Female
  Weight: 58.06 kg

DRUGS (5)
  1. WINTHROP ENOXAPARIN SODIUM [Suspect]
     Active Substance: ENOXAPARIN SODIUM
     Indication: OVARIAN VEIN THROMBOSIS
     Dosage: ONCE A DAY  INJECTED INTO STOMACH AREA
     Dates: start: 20160801, end: 20160814
  2. BACTRIM [Concomitant]
     Active Substance: SULFAMETHOXAZOLE\TRIMETHOPRIM
  3. LOVENOX [Concomitant]
     Active Substance: ENOXAPARIN SODIUM
  4. OXYCODONE [Concomitant]
     Active Substance: OXYCODONE
  5. OXYBUTIN [Concomitant]
     Active Substance: OXYBUTYNIN

REACTIONS (4)
  - Product substitution issue [None]
  - Product quality issue [None]
  - Drug ineffective [None]
  - Pulmonary embolism [None]

NARRATIVE: CASE EVENT DATE: 20160815
